FAERS Safety Report 7859257-7 (Version None)
Quarter: 2011Q4

REPORT INFORMATION
  Report Type: 
  Country: None (occurrence: None)
  Receive Date: 20111027
  Receipt Date: 20111027
  Transmission Date: 20120403
  Serious: Yes (Other)
  Sender: FDA-Public Use
  Company Number: None

PATIENT
  Sex: Female

DRUGS (1)
  1. OMNIPAQUE 350 [Suspect]
     Indication: COMPUTERISED TOMOGRAM
     Dosage: 100 ML
     Route: 048

REACTIONS (5)
  - CONTRAST MEDIA REACTION [None]
  - COUGH [None]
  - FLUSHING [None]
  - URTICARIA [None]
  - PRURITUS [None]
